FAERS Safety Report 23500023 (Version 1)
Quarter: 2024Q1

REPORT INFORMATION
  Report Type: Spontaneous
  Country: AT (occurrence: AT)
  Receive Date: 20240208
  Receipt Date: 20240208
  Transmission Date: 20240410
  Serious: Yes (Death, Other)
  Sender: FDA-Public Use
  Company Number: AT-IPSEN Group, Research and Development-2019-07347

PATIENT
  Age: 9 Year
  Sex: Female
  Weight: 2.83 kg

DRUGS (2)
  1. SOMATROPIN [Suspect]
     Active Substance: SOMATROPIN
     Indication: Prader-Willi syndrome
     Dosage: 0.14 MG/KG, QW
     Route: 065
  2. SOMATROPIN [Suspect]
     Active Substance: SOMATROPIN
     Dosage: 0.28 MG/KG, QW
     Route: 065

REACTIONS (5)
  - Respiratory tract infection [Fatal]
  - Sudden death [Fatal]
  - Sleep apnoea syndrome [Unknown]
  - Hypoventilation [Unknown]
  - General physical health deterioration [Unknown]
